FAERS Safety Report 4894805-0 (Version None)
Quarter: 2006Q1

REPORT INFORMATION
  Report Type: 
  Country: None (occurrence: None)
  Receive Date: 20060126
  Receipt Date: 20060126
  Transmission Date: 20060701
  Serious: Yes (Hospitalization)
  Sender: FDA-Public Use
  Company Number: None

PATIENT
  Age: 83 Year
  Sex: Male
  Weight: 69 kg

DRUGS (9)
  1. MEPERIDINE HCL [Suspect]
     Indication: SEDATION
     Dosage: 50MG  IV  ONCE
     Route: 042
     Dates: start: 20050930, end: 20050930
  2. MIDAZOLAM [Suspect]
     Indication: SEDATION
     Dosage: 1MG  IV  ONCE
     Route: 042
     Dates: start: 20050930, end: 20050930
  3. ACETAMINOPHEN [Concomitant]
  4. ASPIRIN [Concomitant]
  5. ENALAPRIL MALEATE [Concomitant]
  6. FERROUS SULFATE TAB [Concomitant]
  7. MIRTAZAPINE [Concomitant]
  8. MULTI-VITAMIN [Concomitant]
  9. TERAZOSIN HCL [Concomitant]

REACTIONS (3)
  - BLOOD CREATINE PHOSPHOKINASE INCREASED [None]
  - FALL [None]
  - MENTAL STATUS CHANGES [None]
